FAERS Safety Report 5759093-1 (Version None)
Quarter: 2008Q2

REPORT INFORMATION
  Report Type: 
  Country: None (occurrence: None)
  Receive Date: 20080604
  Receipt Date: 20080523
  Transmission Date: 20081010
  Serious: Yes (Other)
  Sender: FDA-Public Use
  Company Number: US-ELI_LILLY_AND_COMPANY-US200805004903

PATIENT
  Sex: Male

DRUGS (2)
  1. STRATTERA [Suspect]
     Dates: start: 20070901
  2. STRATTERA [Suspect]
     Dosage: 40 MG, UNK
     Dates: start: 20080101

REACTIONS (11)
  - ABNORMAL BEHAVIOUR [None]
  - AGGRESSION [None]
  - CONTUSION [None]
  - DEPRESSION [None]
  - FATIGUE [None]
  - INTENTIONAL SELF-INJURY [None]
  - LETHARGY [None]
  - MOOD SWINGS [None]
  - NAUSEA [None]
  - NEGATIVISM [None]
  - SUICIDAL IDEATION [None]
